FAERS Safety Report 6547502-X (Version None)
Quarter: 2010Q1

REPORT INFORMATION
  Report Type: 
  Country: None (occurrence: None)
  Receive Date: 20100122
  Receipt Date: 20100112
  Transmission Date: 20100710
  Serious: Yes (Other)
  Sender: FDA-Public Use
  Company Number: US-WATSON-2010-00346

PATIENT
  Age: 82 Year
  Sex: Male

DRUGS (2)
  1. RAPAFLO [Suspect]
     Indication: BENIGN PROSTATIC HYPERPLASIA
     Dosage: 1 CAPSULE, DAILY
     Route: 048
     Dates: start: 20100111, end: 20100111
  2. KEFLEX                             /00145501/ [Suspect]
     Indication: INFECTION
     Dosage: TOOK ONLY 3 CAPSULES
     Route: 048
     Dates: start: 20100111, end: 20100111

REACTIONS (3)
  - ANAPHYLACTIC REACTION [None]
  - PHARYNGEAL OEDEMA [None]
  - SWOLLEN TONGUE [None]
